FAERS Safety Report 10719606 (Version 2)
Quarter: 2015Q1

REPORT INFORMATION
  Report Type: Spontaneous
  Country: US (occurrence: US)
  Receive Date: 20150119
  Receipt Date: 20150119
  Transmission Date: 20150721
  Serious: No
  Sender: FDA-Public Use
  Company Number: US-UNITED THERAPEUTICS-UNT-2014-010764

PATIENT
  Sex: Female
  Weight: 141.95 kg

DRUGS (2)
  1. REMODULIN [Suspect]
     Active Substance: TREPROSTINIL
     Indication: PULMONARY HYPERTENSION
     Dosage: 0.034 ?G/KG/MIN, CONTINUING
     Route: 058
     Dates: start: 20140522
  2. LETAIRIS [Concomitant]
     Active Substance: AMBRISENTAN
     Indication: PRODUCT USED FOR UNKNOWN INDICATION

REACTIONS (5)
  - Infusion site pain [Unknown]
  - Injection site discharge [Unknown]
  - Weight decreased [Unknown]
  - Dyspnoea [Unknown]
  - Infusion site infection [Unknown]

NARRATIVE: CASE EVENT DATE: 2014
